FAERS Safety Report 8332439-6 (Version None)
Quarter: 2012Q2

REPORT INFORMATION
  Report Type: 
  Country: None (occurrence: None)
  Receive Date: 20120503
  Receipt Date: 20120419
  Transmission Date: 20120825
  Serious: Yes (Death, Other)
  Sender: FDA-Public Use
  Company Number: US-RB-038125-12

PATIENT
  Sex: Female
  Weight: 20 kg

DRUGS (3)
  1. DELSYM [Suspect]
     Indication: INFLUENZA LIKE ILLNESS
     Route: 048
     Dates: start: 20120210
  2. CETIRIZINE HYDROCHLORIDE [Suspect]
     Dosage: 1 DOSE AT ABOUT 8AM AND 1 DOSE AT ABOUT 8PM
     Route: 048
     Dates: start: 20120211
  3. CETIRIZINE HYDROCHLORIDE [Suspect]
     Dosage: 1 DOSE AT ABOUT 8AM AND 1 DOSE AT ABOUT 8PM
     Route: 048
     Dates: start: 20120211

REACTIONS (7)
  - FEELING HOT [None]
  - PAIN IN EXTREMITY [None]
  - TOXICITY TO VARIOUS AGENTS [None]
  - ACCIDENTAL OVERDOSE [None]
  - MUSCLE SPASTICITY [None]
  - MUSCLE SPASMS [None]
  - DYSPNOEA [None]
